FAERS Safety Report 25855908 (Version 1)
Quarter: 2025Q3

REPORT INFORMATION
  Report Type: Spontaneous
  Country: GB (occurrence: GB)
  Receive Date: 20250928
  Receipt Date: 20250928
  Transmission Date: 20251020
  Serious: Yes (Other)
  Sender: DEXCEL LTD.
  Company Number: None

PATIENT
  Sex: Female

DRUGS (1)
  1. OMEPRAZOLE [Suspect]
     Active Substance: OMEPRAZOLE
     Dosage: BEFORE BREAKFAST
     Route: 048
     Dates: start: 20250901, end: 20250914

REACTIONS (6)
  - Muscular weakness [Recovering/Resolving]
  - Arthralgia [Recovering/Resolving]
  - Myalgia [Recovering/Resolving]
  - Back pain [Not Recovered/Not Resolved]
  - Fatigue [Recovering/Resolving]
  - Faeces hard [Recovering/Resolving]
